FAERS Safety Report 11222349 (Version 1)
Quarter: 2015Q2

REPORT INFORMATION
  Report Type: Report from Study
  Country: US (occurrence: US)
  Receive Date: 20150626
  Receipt Date: 20150626
  Transmission Date: 20150821
  Serious: Yes (Hospitalization)
  Sender: FDA-Public Use
  Company Number: US-GILEAD-2015-0160086

PATIENT
  Age: 72 Year
  Sex: Male

DRUGS (16)
  1. BABY ASPIRIN [Concomitant]
     Active Substance: ASPIRIN
  2. FUROSEMID                          /00032601/ [Concomitant]
     Active Substance: FUROSEMIDE
  3. LEVALBUTEROL                       /01419301/ [Concomitant]
  4. TRAZODONE [Concomitant]
     Active Substance: TRAZODONE HYDROCHLORIDE
  5. FINASTERIDE. [Concomitant]
     Active Substance: FINASTERIDE
  6. NOVOLOG [Concomitant]
     Active Substance: INSULIN ASPART
  7. PRILOSEC [Concomitant]
     Active Substance: OMEPRAZOLE MAGNESIUM
  8. SUPER B                            /00176001/ [Concomitant]
  9. SIMVASTATIN. [Concomitant]
     Active Substance: SIMVASTATIN
  10. DALIRESP [Concomitant]
     Active Substance: ROFLUMILAST
  11. AMBRISENTAN [Suspect]
     Active Substance: AMBRISENTAN
     Indication: PULMONARY ARTERIAL HYPERTENSION
     Dosage: 10 MG, QD
     Route: 065
     Dates: start: 201402
  12. SPIRONOLACTONE. [Concomitant]
     Active Substance: SPIRONOLACTONE
  13. CARVEDILOL. [Concomitant]
     Active Substance: CARVEDILOL
  14. LANTUS [Concomitant]
     Active Substance: INSULIN GLARGINE
  15. LORAZEPAM. [Concomitant]
     Active Substance: LORAZEPAM
  16. WELLBUTRIN [Concomitant]
     Active Substance: BUPROPION HYDROCHLORIDE

REACTIONS (2)
  - Chronic obstructive pulmonary disease [Unknown]
  - Dyspnoea [Unknown]
